FAERS Safety Report 11146775 (Version 1)
Quarter: 2015Q2

REPORT INFORMATION
  Report Type: Spontaneous
  Country: KR (occurrence: None)
  Receive Date: 20150526
  Receipt Date: 20150526
  Transmission Date: 20150821
  Serious: Yes (Hospitalization)
  Sender: FDA-Public Use
  Company Number: INT_00769_2015

PATIENT
  Age: 40 Year
  Sex: Female

DRUGS (7)
  1. IFOSFAMIDE (IFOSFAMIDE) [Suspect]
     Active Substance: IFOSFAMIDE
     Indication: THYMOMA
     Dosage: 2500 MG/M2, OVER TWO HOURS ON DAYS 1 AND 2
     Route: 042
     Dates: start: 20150418
  2. MESNA (MESNA) [Suspect]
     Active Substance: MESNA
     Indication: THYMOMA
     Dosage: 500 MG/M2 15 MINUTES ON DAYS 1 AND 2
     Route: 042
     Dates: start: 20150418
  3. CYCLOPHOSPHAMIDE. [Concomitant]
     Active Substance: CYCLOPHOSPHAMIDE
  4. PACLITAXEL (PACLITAXEL) (HQ SPECIALTY) [Suspect]
     Active Substance: PACLITAXEL
     Indication: THYMOMA
     Dosage: 175 MG/M2 OVER 3 HOURS ON DAY 1
     Route: 042
     Dates: start: 20150418
  5. CISPLATIN. [Concomitant]
     Active Substance: CISPLATIN
  6. DOCETAXEL. [Concomitant]
     Active Substance: DOCETAXEL
  7. DOXORUBIN [Concomitant]
     Active Substance: DOXORUBICIN

REACTIONS (4)
  - Tumour lysis syndrome [None]
  - Tachycardia [None]
  - Tachypnoea [None]
  - Oliguria [None]

NARRATIVE: CASE EVENT DATE: 201204
